FAERS Safety Report 17417709 (Version 1)
Quarter: 2020Q1

REPORT INFORMATION
  Report Type: Spontaneous
  Country: JP (occurrence: JP)
  Receive Date: 20200214
  Receipt Date: 20200214
  Transmission Date: 20200409
  Serious: Yes (Other)
  Sender: FDA-Public Use
  Company Number: JP-BIOGEN-2020BI00838764

PATIENT
  Age: 33 Year
  Sex: Female

DRUGS (1)
  1. TYSABRI [Suspect]
     Active Substance: NATALIZUMAB
     Indication: MULTIPLE SCLEROSIS
     Route: 041

REACTIONS (4)
  - Premature separation of placenta [Unknown]
  - Premature baby [Unknown]
  - Caesarean section [Unknown]
  - Maternal exposure during pregnancy [Unknown]
